FAERS Safety Report 15834435 (Version 2)
Quarter: 2019Q1

REPORT INFORMATION
  Report Type: Spontaneous
  Country: IN (occurrence: IN)
  Receive Date: 20190116
  Receipt Date: 20190212
  Transmission Date: 20190417
  Serious: Yes (Hospitalization, Other)
  Sender: FDA-Public Use
  Company Number: PHHY2019IN008763

PATIENT
  Age: 83 Year
  Sex: Male
  Weight: 72 kg

DRUGS (5)
  1. SECUKINUMAB. [Suspect]
     Active Substance: SECUKINUMAB
     Indication: PSORIASIS
     Dosage: UNK UNK, QW
     Route: 058
     Dates: start: 20181122
  2. SECUKINUMAB. [Suspect]
     Active Substance: SECUKINUMAB
     Dosage: UNK UNK, QW
     Route: 058
     Dates: start: 20181213
  3. SECUKINUMAB. [Suspect]
     Active Substance: SECUKINUMAB
     Dosage: UNK UNK, QW
     Route: 058
     Dates: start: 20181222
  4. SECUKINUMAB. [Suspect]
     Active Substance: SECUKINUMAB
     Dosage: UNK UNK, QW
     Route: 058
     Dates: start: 20181129
  5. SECUKINUMAB. [Suspect]
     Active Substance: SECUKINUMAB
     Dosage: UNK UNK, QW
     Route: 058
     Dates: start: 20181206

REACTIONS (16)
  - Cerebral atrophy [Unknown]
  - Arteriosclerosis [Unknown]
  - Cognitive disorder [Unknown]
  - White blood cell count increased [Unknown]
  - Lymphocyte count decreased [Unknown]
  - Cerebrovascular accident [Recovered/Resolved]
  - Pharyngitis [Unknown]
  - Neutrophil count increased [Unknown]
  - Cerebral microhaemorrhage [Unknown]
  - Confusional state [Unknown]
  - Adenosine deaminase abnormal [Unknown]
  - Headache [Unknown]
  - Myocardial ischaemia [Unknown]
  - Cerebral small vessel ischaemic disease [Unknown]
  - Mucosal hypertrophy [Unknown]
  - Rhinorrhoea [Unknown]

NARRATIVE: CASE EVENT DATE: 20190112
